FAERS Safety Report 5712742-6 (Version None)
Quarter: 2008Q2

REPORT INFORMATION
  Report Type: 
  Country: None (occurrence: None)
  Receive Date: 20080422
  Receipt Date: 20080412
  Transmission Date: 20081010
  Serious: Yes (Other)
  Sender: FDA-Public Use
  Company Number: DE-JNJFOC-20071105385

PATIENT
  Sex: Female

DRUGS (6)
  1. IMOGAS [Suspect]
     Indication: FLATULENCE
  2. IMOGAS [Suspect]
     Indication: ABDOMINAL DISTENSION
  3. IMOGAS [Suspect]
     Indication: ABDOMINAL PAIN
     Dosage: AS NEEDED
  4. OPRIPRAMOL AL 100 [Concomitant]
     Indication: PANIC ATTACK
     Route: 048
  5. OPRIPRAMOL AL 100 [Concomitant]
     Indication: ANXIETY
     Dosage: 50-0-50 MG
     Route: 048
  6. DECORTIN H [Concomitant]
     Indication: RHEUMATOID ARTHRITIS

REACTIONS (3)
  - DYSPHONIA [None]
  - DYSPNOEA [None]
  - PHARYNGEAL OEDEMA [None]
